FAERS Safety Report 6670297-6 (Version None)
Quarter: 2010Q2

REPORT INFORMATION
  Report Type: 
  Country: None (occurrence: None)
  Receive Date: 20100405
  Receipt Date: 20100324
  Transmission Date: 20101027
  Serious: Yes (Hospitalization, Other)
  Sender: FDA-Public Use
  Company Number: 2010AL001849

PATIENT
  Age: 64 Year
  Sex: Male

DRUGS (7)
  1. DILTIAZEM HCL [Suspect]
     Indication: HYPERTENSION
     Dosage: 60 MG;BID;PO
     Route: 048
     Dates: end: 20100304
  2. INDOMETHACIN [Concomitant]
  3. ATENOLOL [Concomitant]
  4. SIMVASTATIN [Concomitant]
  5. PREDNISONE TAB [Concomitant]
  6. ACETYLSALICYLIC ACID SRT [Concomitant]
  7. AMPHOTERICIN B [Concomitant]

REACTIONS (5)
  - ABDOMINAL PAIN [None]
  - CARDIAC FAILURE CONGESTIVE [None]
  - CONDITION AGGRAVATED [None]
  - DYSPNOEA [None]
  - PLEURAL EFFUSION [None]
